FAERS Safety Report 14195811 (Version 1)
Quarter: 2017Q4

REPORT INFORMATION
  Report Type: Spontaneous
  Country: US (occurrence: US)
  Receive Date: 20171116
  Receipt Date: 20171116
  Transmission Date: 20180321
  Serious: No
  Sender: FDA-Public Use
  Company Number: US-ALLERGAN-1733476US

PATIENT
  Age: 4 Decade
  Sex: Female

DRUGS (1)
  1. RHOFADE [Suspect]
     Active Substance: OXYMETAZOLINE HYDROCHLORIDE
     Indication: PRODUCT USED FOR UNKNOWN INDICATION
     Dosage: PEA-SIZED AMOUNT
     Route: 061

REACTIONS (5)
  - Skin discolouration [Unknown]
  - Blood pressure increased [Unknown]
  - Paraesthesia [Unknown]
  - Nausea [Unknown]
  - Headache [Unknown]
